FAERS Safety Report 12213161 (Version 2)
Quarter: 2017Q1

REPORT INFORMATION
  Report Type: Report from Study
  Country: US (occurrence: US)
  Receive Date: 20160328
  Receipt Date: 20170207
  Transmission Date: 20170428
  Serious: No
  Sender: FDA-Public Use
  Company Number: PHEH2016US007267

PATIENT
  Age: 61 Year
  Sex: Female

DRUGS (1)
  1. TEGRETOL [Suspect]
     Active Substance: CARBAMAZEPINE
     Indication: PRODUCT USED FOR UNKNOWN INDICATION
     Route: 065

REACTIONS (5)
  - Emotional disorder [Unknown]
  - Drug ineffective [Unknown]
  - Tachyphrenia [Unknown]
  - Agitation [Unknown]
  - Malaise [Unknown]

NARRATIVE: CASE EVENT DATE: 20151221
